FAERS Safety Report 7622370-3 (Version None)
Quarter: 2011Q3

REPORT INFORMATION
  Report Type: 
  Country: None (occurrence: None)
  Receive Date: 20110711
  Receipt Date: 20110627
  Transmission Date: 20111222
  Serious: Yes (Other)
  Sender: FDA-Public Use
  Company Number: ES-ACCORD-009786

PATIENT
  Age: 52 Year
  Sex: Female

DRUGS (4)
  1. GRAPEFRUIT JUICE(GRAPEFRUIT JUICE) [Suspect]
     Indication: PRODUCT USED FOR UNKNOWN INDICATION
  2. DOXORUBICIN HCL [Concomitant]
  3. DOCETAXEL [Suspect]
     Indication: OESOPHAGEAL SQUAMOUS CELL CARCINOMA
     Dosage: INTRAVENOUS (NOT OTHERWISE SPECIFIED)
     Route: 042
  4. GEMCITABINE [Concomitant]

REACTIONS (2)
  - DRUG CLEARANCE DECREASED [None]
  - FOOD INTERACTION [None]
